FAERS Safety Report 4519161-9 (Version None)
Quarter: 2004Q4

REPORT INFORMATION
  Report Type: 
  Country: None (occurrence: None)
  Receive Date: 20041201
  Receipt Date: 20041116
  Transmission Date: 20050328
  Serious: Yes (Hospitalization)
  Sender: FDA-Public Use
  Company Number: 2004AP05457

PATIENT
  Age: 82 Year
  Sex: Male

DRUGS (8)
  1. IRESSA [Suspect]
     Indication: LUNG SQUAMOUS CELL CARCINOMA STAGE UNSPECIFIED
     Dosage: 250 MG QOD PO
     Route: 048
     Dates: start: 20040830, end: 20041012
  2. IRESSA [Suspect]
     Indication: NON-SMALL CELL LUNG CANCER
     Dosage: 250 MG QOD PO
     Route: 048
     Dates: start: 20040830, end: 20041012
  3. MEDROL [Concomitant]
  4. BAKTAR [Concomitant]
  5. ALFAROL [Concomitant]
  6. ITRIZOLE [Concomitant]
  7. RADIATION THERAPY [Concomitant]
  8. CHEMOTHERAPY [Concomitant]

REACTIONS (3)
  - CARDIAC FAILURE [None]
  - GENERAL PHYSICAL HEALTH DETERIORATION [None]
  - GENERALISED OEDEMA [None]
